FAERS Safety Report 5216598-X (Version None)
Quarter: 2007Q1

REPORT INFORMATION
  Report Type: 
  Country: None (occurrence: None)
  Receive Date: 20070118
  Receipt Date: 20070104
  Transmission Date: 20070707
  Serious: Yes (Disabling)
  Sender: FDA-Public Use
  Company Number: POMP-10922

PATIENT
  Age: 15 Year
  Sex: Male
  Weight: 43.6 kg

DRUGS (4)
  1. MYOZYME [Suspect]
     Indication: GLYCOGEN STORAGE DISEASE TYPE II
     Dosage: 20 MG/KG Q2WKS IV
     Route: 042
     Dates: start: 20061201
  2. ALPHA-GLUCOSIDASE (HUMAN, RECOMBINANT, CHO CELLS, GENZYME) [Suspect]
     Indication: GLYCOGEN STORAGE DISEASE TYPE II
     Dosage: 20 MG/KG Q2WKS IV
     Route: 042
     Dates: start: 20040121, end: 20061201
  3. PAMIDRONATE DISODIUM [Concomitant]
  4. CALCIUM [Concomitant]

REACTIONS (6)
  - ACCIDENT [None]
  - MUSCULAR WEAKNESS [None]
  - PNEUMONIA [None]
  - SCOLIOSIS [None]
  - THERAPEUTIC RESPONSE DECREASED [None]
  - WRIST FRACTURE [None]
